FAERS Safety Report 4274766-8 (Version None)
Quarter: 2004Q1

REPORT INFORMATION
  Report Type: 
  Country: None (occurrence: None)
  Receive Date: 20040120
  Receipt Date: 20040120
  Transmission Date: 20041129
  Serious: Yes (Other)
  Sender: FDA-Public Use
  Company Number: None

PATIENT
  Sex: Male
  Weight: 70.3075 kg

DRUGS (9)
  1. ATAZANAVIR 150 MG CAPS - BMS [Suspect]
     Indication: ACQUIRED IMMUNODEFICIENCY SYNDROME
     Dosage: 300 MG PO QD
     Route: 048
     Dates: start: 20031002
  2. ZERIT [Concomitant]
  3. VIREAD [Concomitant]
  4. NORVIR [Concomitant]
  5. TINCTURE OF OPIUM [Concomitant]
  6. BACTRIM DS [Concomitant]
  7. PRINIVIL [Concomitant]
  8. MUCELEX [Concomitant]
  9. VIAGRA [Concomitant]

REACTIONS (2)
  - JAUNDICE [None]
  - MALAISE [None]
